FAERS Safety Report 6089643-X (Version None)
Quarter: 2009Q1

REPORT INFORMATION
  Report Type: 
  Country: None (occurrence: None)
  Receive Date: 20090220
  Receipt Date: 20090220
  Transmission Date: 20090719
  Serious: No
  Sender: FDA-Public Use
  Company Number: None

PATIENT
  Sex: Female
  Weight: 87.9978 kg

DRUGS (2)
  1. FLEXERIL [Suspect]
     Indication: BACK PAIN
     Dosage: 10 MG 1 QD ORAL
     Route: 048
  2. LASIX [Suspect]
     Indication: OEDEMA
     Dosage: 40 MG 1 BID ORAL
     Route: 048

REACTIONS (3)
  - PRODUCT QUALITY ISSUE [None]
  - PRURITUS [None]
  - URTICARIA [None]
